FAERS Safety Report 9267558 (Version 2)
Quarter: 2013Q2

REPORT INFORMATION
  Report Type: Spontaneous
  Country: JP (occurrence: JP)
  Receive Date: 20130502
  Receipt Date: 20130523
  Transmission Date: 20140414
  Serious: Yes (Other)
  Sender: FDA-Public Use
  Company Number: JP-GLAXOSMITHKLINE-B0887744A

PATIENT
  Age: 28 Year
  Sex: Female

DRUGS (1)
  1. LAMICTAL [Suspect]
     Indication: BIPOLAR DISORDER
     Dosage: 100MG TWICE PER DAY
     Route: 048

REACTIONS (4)
  - Bipolar disorder [Unknown]
  - Hallucination, auditory [Not Recovered/Not Resolved]
  - Affect lability [Not Recovered/Not Resolved]
  - Crying [Unknown]
